FAERS Safety Report 4658937-4 (Version None)
Quarter: 2005Q2

REPORT INFORMATION
  Report Type: 
  Country: None (occurrence: None)
  Receive Date: 20050509
  Receipt Date: 20050406
  Transmission Date: 20051028
  Serious: Yes (Other)
  Sender: FDA-Public Use
  Company Number: 2004224204US

PATIENT
  Sex: Female
  Weight: 65.7716 kg

DRUGS (5)
  1. PROVERA [Suspect]
     Indication: HORMONE REPLACEMENT THERAPY
     Dates: start: 19740101, end: 20030801
  2. CONJUGATED ESTROGENS [Suspect]
     Indication: HORMONE REPLACEMENT THERAPY
     Dates: start: 19740101, end: 19800801
  3. ESTRADIOL [Suspect]
     Indication: HORMONE REPLACEMENT THERAPY
     Dates: start: 19800101, end: 20030801
  4. SERTRALINE HCL [Concomitant]
  5. ALPRAZOLAM [Concomitant]

REACTIONS (2)
  - BREAST CANCER FEMALE [None]
  - CONDITION AGGRAVATED [None]
